FAERS Safety Report 22107199 (Version 2)
Quarter: 2024Q2

REPORT INFORMATION
  Report Type: Spontaneous
  Country: US (occurrence: US)
  Receive Date: 20230317
  Receipt Date: 20240408
  Transmission Date: 20240716
  Serious: No
  Sender: FDA-Public Use
  Company Number: US-UCBSA-2022023118

PATIENT

DRUGS (2)
  1. BRIVIACT [Suspect]
     Active Substance: BRIVARACETAM
     Indication: Partial seizures
     Dosage: UNKNOWN DOSE
  2. CENOBAMATE [Concomitant]
     Active Substance: CENOBAMATE
     Indication: Partial seizures
     Dosage: UNKNOWN DOSE

REACTIONS (1)
  - Somnolence [Recovered/Resolved]
